FAERS Safety Report 11813118 (Version 2)
Quarter: 2016Q1

REPORT INFORMATION
  Report Type: Not Available
  Country: FR (occurrence: FR)
  Receive Date: 20151209
  Receipt Date: 20160210
  Transmission Date: 20160525
  Serious: Yes (Death, Congenital Anomaly)
  Sender: FDA-Public Use
  Company Number: FR-BEH-2015056434

PATIENT
  Sex: Male

DRUGS (6)
  1. REMICADE [Suspect]
     Active Substance: INFLIXIMAB
     Route: 064
     Dates: start: 20150609
  2. REMICADE [Suspect]
     Active Substance: INFLIXIMAB
     Indication: PRODUCT USED FOR UNKNOWN INDICATION
     Route: 064
     Dates: start: 20141104
  3. IMUREL [Suspect]
     Active Substance: AZATHIOPRINE SODIUM
     Dosage: START DATE: ??-APR-2015
     Route: 064
  4. RHOPHYLAC [Suspect]
     Active Substance: HUMAN RHO(D) IMMUNE GLOBULIN
     Indication: PRODUCT USED FOR UNKNOWN INDICATION
     Dosage: SINGLE DOSE
     Route: 064
     Dates: start: 20150513
  5. REMICADE [Suspect]
     Active Substance: INFLIXIMAB
     Route: 064
     Dates: start: 20150427
  6. IMUREL [Suspect]
     Active Substance: AZATHIOPRINE SODIUM
     Indication: PRODUCT USED FOR UNKNOWN INDICATION
     Dosage: STOP DATE: ??-APR-2015
     Route: 064
     Dates: start: 20141104

REACTIONS (9)
  - Cytomegalovirus infection [Unknown]
  - Cerebral ventricle dilatation [Fatal]
  - Macrocephaly [Fatal]
  - Central nervous system necrosis [Fatal]
  - Brain oedema [Fatal]
  - Intraventricular haemorrhage [Fatal]
  - Cerebral thrombosis [Fatal]
  - Meningorrhagia [Fatal]
  - Cerebral haemorrhage foetal [Fatal]

NARRATIVE: CASE EVENT DATE: 201506
